FAERS Safety Report 8896143 (Version 1)
Quarter: 2012Q4

REPORT INFORMATION
  Report Type: 
  Country: US (occurrence: US)
  Receive Date: 20121108
  Receipt Date: 20121108
  Transmission Date: 20130627
  Serious: No
  Sender: FDA-Public Use
  Company Number: US-PFIZER INC-2012277728

PATIENT
  Age: 54 Year
  Sex: Female
  Weight: 66.67 kg

DRUGS (4)
  1. LYRICA [Suspect]
     Indication: NERVE PAIN
     Dosage: 75 mg, UNK
     Route: 048
     Dates: start: 201210, end: 20121106
  2. ZOSYN [Suspect]
     Dosage: UNK
  3. KLONOPIN [Suspect]
     Dosage: UNK
  4. NORVASC [Concomitant]
     Indication: BLOOD PRESSURE HIGH
     Dosage: 5 mg, UNK

REACTIONS (1)
  - Weight increased [Unknown]
